FAERS Safety Report 20520298 (Version 1)
Quarter: 2022Q1

REPORT INFORMATION
  Report Type: Spontaneous
  Country: AU (occurrence: AU)
  Receive Date: 20220225
  Receipt Date: 20220225
  Transmission Date: 20220423
  Serious: No
  Sender: FDA-Public Use
  Company Number: AU-LUPIN PHARMACEUTICALS INC.-2022-02254

PATIENT
  Age: 58 Year
  Sex: Male
  Weight: 74 kg

DRUGS (14)
  1. CLOBETASOL [Suspect]
     Active Substance: CLOBETASOL
     Indication: Pityriasis rubra pilaris
     Dosage: UNK, FOR HANDS AND FEET
     Route: 061
  2. BETAMETHASONE DIPROPIONATE [Suspect]
     Active Substance: BETAMETHASONE DIPROPIONATE
     Indication: Pityriasis rubra pilaris
     Dosage: UNK
     Route: 061
  3. ACITRETIN [Suspect]
     Active Substance: ACITRETIN
     Indication: Pityriasis rubra pilaris
     Dosage: 25 MG, QD
     Route: 065
     Dates: start: 2014, end: 2015
  4. ACITRETIN [Suspect]
     Active Substance: ACITRETIN
     Dosage: UNK, 25 MG/D AND 50 MG/D ALTERNATE DAYS
     Route: 065
     Dates: start: 2015
  5. ACITRETIN [Suspect]
     Active Substance: ACITRETIN
     Dosage: 25 MG, QD
     Route: 065
     Dates: start: 201510
  6. ACITRETIN [Suspect]
     Active Substance: ACITRETIN
     Dosage: 50 MG, QD
     Route: 065
     Dates: start: 2016
  7. ACITRETIN [Suspect]
     Active Substance: ACITRETIN
     Dosage: 25 MG, QD
     Route: 065
     Dates: start: 2016
  8. ACITRETIN [Suspect]
     Active Substance: ACITRETIN
     Dosage: 25 MG, TWICE A WEEK
     Route: 065
     Dates: start: 2016
  9. METHOTREXATE [Suspect]
     Active Substance: METHOTREXATE
     Indication: Pityriasis rubra pilaris
     Dosage: 10 MG EVERY WEEK
     Route: 065
     Dates: start: 2015
  10. INFLIXIMAB [Suspect]
     Active Substance: INFLIXIMAB
     Indication: Pityriasis rubra pilaris
     Dosage: 400 MG EVERY 2 WEEK
     Route: 065
     Dates: start: 201510
  11. SECUKINUMAB [Suspect]
     Active Substance: SECUKINUMAB
     Indication: Pityriasis rubra pilaris
     Dosage: 300 MG EVERY MONTH
     Route: 065
     Dates: start: 2016, end: 2017
  12. SALICYLIC ACID [Suspect]
     Active Substance: SALICYLIC ACID
     Indication: Pityriasis rubra pilaris
     Dosage: UNK, WITH WHITE SOFT PARAFFIN
     Route: 061
  13. LACTIC ACID [Suspect]
     Active Substance: LACTIC ACID
     Indication: Pityriasis rubra pilaris
     Dosage: UNK
     Route: 061
  14. PROPYLENE GLYCOL [Suspect]
     Active Substance: PROPYLENE GLYCOL
     Indication: Pityriasis rubra pilaris
     Dosage: UNK, AQUEOUS CREAM
     Route: 061

REACTIONS (1)
  - Off label use [Unknown]
